FAERS Safety Report 6171245-8 (Version None)
Quarter: 2009Q2

REPORT INFORMATION
  Report Type: 
  Country: None (occurrence: None)
  Receive Date: 20090428
  Receipt Date: 20090428
  Transmission Date: 20091009
  Serious: Yes (Other)
  Sender: FDA-Public Use
  Company Number: None

PATIENT
  Age: 89 Year
  Sex: Female

DRUGS (1)
  1. LAMICTAL [Suspect]
     Indication: EPILEPSY
     Dosage: 200 MG QAM PO 300 MG QHS PO
     Route: 048
     Dates: start: 20050201

REACTIONS (4)
  - CONVULSION [None]
  - FALL [None]
  - HYPOTENSION [None]
  - PRODUCT SUBSTITUTION ISSUE [None]
